FAERS Safety Report 6210084-6 (Version None)
Quarter: 2009Q2

REPORT INFORMATION
  Report Type: 
  Country: None (occurrence: None)
  Receive Date: 20090529
  Receipt Date: 20090529
  Transmission Date: 20091009
  Serious: Yes (Hospitalization)
  Sender: FDA-Public Use
  Company Number: None

PATIENT
  Age: 73 Year
  Sex: Male
  Weight: 63.5 kg

DRUGS (1)
  1. DIGOXIN [Suspect]
     Indication: CARDIAC FAILURE CHRONIC
     Dosage: 0.125 MG EVERY DAY PO
     Route: 048
     Dates: start: 20080924

REACTIONS (3)
  - ASTHENIA [None]
  - BRADYCARDIA [None]
  - THERAPEUTIC AGENT TOXICITY [None]
